FAERS Safety Report 18193115 (Version 2)
Quarter: 2020Q4

REPORT INFORMATION
  Report Type: Spontaneous
  Country: JP (occurrence: JP)
  Receive Date: 20200825
  Receipt Date: 20201216
  Transmission Date: 20210113
  Serious: Yes (Hospitalization)
  Sender: FDA-Public Use
  Company Number: JP-BAYER-2020-173760

PATIENT
  Age: 76 Year
  Sex: Male
  Weight: 50 kg

DRUGS (15)
  1. CETILO [Concomitant]
     Active Substance: SENNA LEAF
  2. MIYA-BM [Concomitant]
     Active Substance: CLOSTRIDIUM BUTYRICUM SPORES STRAIN M-55
  3. ALLOPURINOL. [Suspect]
     Active Substance: ALLOPURINOL
     Dosage: UNK
     Dates: end: 20200715
  4. TANATRIL [Concomitant]
     Active Substance: IMIDAPRIL
  5. THYRADIN S [Concomitant]
     Active Substance: LEVOTHYROXINE SODIUM
  6. ALFACALCIDOL [Concomitant]
     Active Substance: ALFACALCIDOL
  7. STIVARGA [Suspect]
     Active Substance: REGORAFENIB
     Indication: COLON CANCER
     Dosage: 80 MG, QD
     Route: 048
     Dates: start: 20200617, end: 20200622
  8. STIVARGA [Suspect]
     Active Substance: REGORAFENIB
     Indication: COLON CANCER
     Dosage: 80 MG, QD
     Route: 048
     Dates: start: 20200318
  9. AMLODIPINE [Concomitant]
     Active Substance: AMLODIPINE BESYLATE
  10. CARDENALIN [Concomitant]
     Active Substance: DOXAZOSIN MESYLATE
  11. IRON [Concomitant]
     Active Substance: IRON
  12. FUROSEMIDE. [Concomitant]
     Active Substance: FUROSEMIDE
  13. TELMISARTAN. [Concomitant]
     Active Substance: TELMISARTAN
  14. STIVARGA [Suspect]
     Active Substance: REGORAFENIB
     Indication: COLON CANCER
     Dosage: 80 MG, QD
     Route: 048
     Dates: start: 20200513
  15. LEVOFLOXACIN HEMIHYDRATE [Concomitant]
     Active Substance: LEVOFLOXACIN

REACTIONS (6)
  - Erythema [Recovering/Resolving]
  - Erythema multiforme [Recovering/Resolving]
  - Chills [Recovering/Resolving]
  - Pyrexia [Recovering/Resolving]
  - Rash [Recovering/Resolving]
  - Drug eruption [Recovering/Resolving]

NARRATIVE: CASE EVENT DATE: 20200619
